FAERS Safety Report 10338750 (Version 1)
Quarter: 2014Q3

REPORT INFORMATION
  Report Type: Spontaneous
  Country: US (occurrence: None)
  Receive Date: 20140722
  Receipt Date: 20140722
  Transmission Date: 20150326
  Serious: Yes (Hospitalization)
  Sender: FDA-Public Use
  Company Number: None

PATIENT
  Age: 62 Year
  Sex: Male
  Weight: 72.3 kg

DRUGS (1)
  1. INTRON A [Suspect]
     Active Substance: INTERFERON ALFA-2B
     Dosage: 19 MU
     Dates: end: 20140707

REACTIONS (4)
  - Nausea [None]
  - Pyrexia [None]
  - Systemic inflammatory response syndrome [None]
  - Chills [None]

NARRATIVE: CASE EVENT DATE: 20140707
